FAERS Safety Report 22036272 (Version 1)
Quarter: 2023Q1

REPORT INFORMATION
  Report Type: Spontaneous
  Country: FR (occurrence: FR)
  Receive Date: 20230225
  Receipt Date: 20230225
  Transmission Date: 20230418
  Serious: Yes (Death, Other)
  Sender: FDA-Public Use
  Company Number: FR-AFSSAPS-AN2023000214

PATIENT
  Age: 73 Year
  Sex: Male

DRUGS (15)
  1. ASPIRIN [Interacting]
     Active Substance: ASPIRIN
     Indication: Stent placement
     Dosage: 150 MILLIGRAM, 1 TOTAL
     Route: 048
     Dates: start: 20230117, end: 20230117
  2. CLOPIDOGREL [Interacting]
     Active Substance: CLOPIDOGREL BISULFATE
     Indication: Stent placement
     Dosage: 75 MILLIGRAM, 1 TOTAL
     Route: 048
     Dates: start: 20230117, end: 20230117
  3. APIXABAN [Interacting]
     Active Substance: APIXABAN
     Indication: Stent placement
     Dosage: 10 MILLIGRAM, 1 TOTAL
     Route: 048
     Dates: start: 20230117, end: 20230117
  4. TICAGRELOR [Interacting]
     Active Substance: TICAGRELOR
     Indication: Stent placement
     Dosage: UNK
     Route: 042
     Dates: start: 20230117, end: 20230117
  5. HEPARIN [Interacting]
     Active Substance: HEPARIN SODIUM
     Indication: Stent placement
     Dosage: UNK
     Route: 058
     Dates: start: 20230117, end: 20230117
  6. ATORVASTATIN [Concomitant]
     Active Substance: ATORVASTATIN
     Indication: Product used for unknown indication
     Dosage: 80 MILLIGRAM, ONCE A DAY
     Route: 048
     Dates: end: 20230117
  7. BISOPROLOL FUMARATE [Concomitant]
     Active Substance: BISOPROLOL FUMARATE
     Indication: Product used for unknown indication
     Dosage: 5 MILLIGRAM, ONCE A DAY
     Route: 048
     Dates: end: 20230117
  8. DAPAGLIFLOZIN PROPANEDIOL [Concomitant]
     Active Substance: DAPAGLIFLOZIN PROPANEDIOL
     Indication: Product used for unknown indication
     Dosage: 10 MILLIGRAM, ONCE A DAY
     Route: 048
     Dates: end: 20230117
  9. EZETIMIBE [Concomitant]
     Active Substance: EZETIMIBE
     Indication: Product used for unknown indication
     Dosage: 10 MILLIGRAM, ONCE A DAY
     Route: 048
     Dates: end: 20230117
  10. FUROSEMIDE [Concomitant]
     Active Substance: FUROSEMIDE
     Indication: Product used for unknown indication
     Dosage: 20 MILLIGRAM, ONCE A DAY
     Route: 048
     Dates: end: 20230117
  11. FINASTERIDE [Concomitant]
     Active Substance: FINASTERIDE
     Indication: Product used for unknown indication
     Dosage: 5 MILLIGRAM, ONCE A DAY
     Route: 048
     Dates: end: 20230117
  12. IRBESARTAN [Concomitant]
     Active Substance: IRBESARTAN
     Indication: Product used for unknown indication
     Dosage: 300 MILLIGRAM, ONCE A DAY
     Route: 048
     Dates: end: 20230117
  13. LEVOTHYROXINE SODIUM [Concomitant]
     Active Substance: LEVOTHYROXINE SODIUM
     Indication: Product used for unknown indication
     Dosage: 62.5 MICROGRAM, ONCE A DAY
     Route: 048
     Dates: end: 20230117
  14. RABEPRAZOLE [Concomitant]
     Active Substance: RABEPRAZOLE
     Indication: Product used for unknown indication
     Dosage: 10 MILLIGRAM, ONCE A DAY
     Route: 048
     Dates: end: 20230117
  15. SPIRONOLACTONE [Concomitant]
     Active Substance: SPIRONOLACTONE
     Indication: Product used for unknown indication
     Dosage: 12.5 MILLIGRAM, ONCE A DAY
     Route: 048
     Dates: end: 20230117

REACTIONS (4)
  - Haemorrhagic stroke [Fatal]
  - Cardiac arrest [Fatal]
  - Drug interaction [Fatal]
  - Off label use [Unknown]

NARRATIVE: CASE EVENT DATE: 20230117
